FAERS Safety Report 17784025 (Version 1)
Quarter: 2020Q2

REPORT INFORMATION
  Report Type: Spontaneous
  Country: US (occurrence: US)
  Receive Date: 20200513
  Receipt Date: 20200513
  Transmission Date: 20200714
  Serious: Yes (Death)
  Sender: FDA-Public Use
  Company Number: None

PATIENT
  Age: 69 Year
  Sex: Male
  Weight: 120 kg

DRUGS (1)
  1. HEPARIN (HEPARIN CA 25000UNIT/ML INJ) [Suspect]
     Active Substance: HEPARIN CALCIUM
     Indication: PULMONARY EMBOLISM
     Dosage: ?          OTHER STRENGTH:25000 UNT/ML;?
     Dates: start: 20200227, end: 20200228

REACTIONS (4)
  - Fall [None]
  - Brain herniation [None]
  - Cerebral haemorrhage [None]
  - Subdural haematoma [None]

NARRATIVE: CASE EVENT DATE: 20200227
